FAERS Safety Report 26204600 (Version 1)
Quarter: 2025Q4

REPORT INFORMATION
  Report Type: Report from Study
  Country: EU (occurrence: EU)
  Receive Date: 20251227
  Receipt Date: 20251227
  Transmission Date: 20260117
  Serious: Yes (Hospitalization)
  Sender: AMGEN
  Company Number: EU-UCBSA-2025076876

PATIENT
  Sex: Female

DRUGS (6)
  1. ROMOSOZUMAB [Suspect]
     Active Substance: ROMOSOZUMAB
     Indication: Osteoporosis
     Dosage: 210 MILLIGRAM, MONTHLY (QM)
     Route: 065
     Dates: start: 20251020, end: 2025
  2. ROMOSOZUMAB [Suspect]
     Active Substance: ROMOSOZUMAB
     Dosage: UNK
     Route: 065
     Dates: start: 2025, end: 2025
  3. NITROFURANTOIN [Concomitant]
     Active Substance: NITROFURANTOIN
     Indication: Urinary tract infection
     Dosage: 50 MILLIGRAM, ONCE DAILY (QD)
     Route: 048
     Dates: start: 2024
  4. OMEPRAZOLE [Concomitant]
     Active Substance: OMEPRAZOLE
     Indication: Gastrointestinal disorder
     Dosage: 20 MILLIGRAM, ONCE DAILY (QD)
     Route: 048
  5. SALT [Concomitant]
     Active Substance: SODIUM CHLORIDE
     Indication: Orthostatic hypotension
     Dosage: 1 GRAM, 3X/DAY (TID)
     Route: 065
     Dates: start: 20251006
  6. PREGABALIN [Concomitant]
     Active Substance: PREGABALIN
     Indication: Polyneuropathy
     Dosage: 100 MILLIGRAM, 2X/DAY (BID)
     Route: 065

REACTIONS (5)
  - Nausea [Recovered/Resolved]
  - Headache [Recovered/Resolved]
  - Dizziness [Unknown]
  - Dehydration [Unknown]
  - Balance disorder [Recovered/Resolved]

NARRATIVE: CASE EVENT DATE: 20250101
